FAERS Safety Report 10213535 (Version 1)
Quarter: 2014Q2

REPORT INFORMATION
  Report Type: Spontaneous
  Country: US (occurrence: None)
  Receive Date: 20140529
  Receipt Date: 20140529
  Transmission Date: 20141212
  Serious: Yes (Hospitalization, Other)
  Sender: FDA-Public Use
  Company Number: US-ZYDUS-003465

PATIENT
  Age: 71 Year
  Sex: Female

DRUGS (2)
  1. LAMOTRIGINE  (LAMOTRIGINE) [Suspect]
  2. BUPROPION (BUPROPION) [Suspect]

REACTIONS (13)
  - Status epilepticus [None]
  - Intentional overdose [None]
  - Intentional self-injury [None]
  - Suicide attempt [None]
  - Exposure via ingestion [None]
  - Mental status changes [None]
  - Agitation [None]
  - Unresponsive to stimuli [None]
  - Muscle twitching [None]
  - Excessive eye blinking [None]
  - Disorientation [None]
  - Electrocardiogram QT prolonged [None]
  - Drug level increased [None]
